FAERS Safety Report 7051201-8 (Version None)
Quarter: 2010Q4

REPORT INFORMATION
  Report Type: 
  Country: None (occurrence: None)
  Receive Date: 20101019
  Receipt Date: 20101014
  Transmission Date: 20110411
  Serious: Yes (Death)
  Sender: FDA-Public Use
  Company Number: PHHY2010US68742

PATIENT
  Sex: Male

DRUGS (5)
  1. EXJADE [Suspect]
     Indication: MYELODYSPLASTIC SYNDROME
     Dosage: 250 MG, TID
     Route: 048
  2. DIOVAN [Concomitant]
  3. JANUVIA [Concomitant]
  4. COREG [Concomitant]
  5. CELEBREX [Concomitant]

REACTIONS (2)
  - CEREBRAL HAEMORRHAGE [None]
  - THROMBOCYTOPENIA [None]
